FAERS Safety Report 9806561 (Version 1)
Quarter: 2014Q1

REPORT INFORMATION
  Report Type: Spontaneous
  Country: US (occurrence: US)
  Receive Date: 20140109
  Receipt Date: 20140109
  Transmission Date: 20141002
  Serious: No
  Sender: FDA-Public Use
  Company Number: US-VERTEX PHARMACEUTICALS INC-2014-000061

PATIENT
  Age: 50 Year
  Sex: Female
  Weight: 62.59 kg

DRUGS (3)
  1. INCIVEK [Suspect]
     Indication: HEPATITIS C
     Dosage: 2 DF, TID
     Dates: start: 201311
  2. RIBASPHERE [Suspect]
     Indication: HEPATITIS C
     Dosage: 5 DF, QD
     Dates: start: 201311
  3. PEGASYS [Suspect]
     Indication: HEPATITIS C
     Dosage: 180 ?G, QW
     Route: 058
     Dates: start: 201311

REACTIONS (6)
  - Eye burns [Not Recovered/Not Resolved]
  - Migraine [Unknown]
  - Eyelid pain [Not Recovered/Not Resolved]
  - White blood cell count decreased [Unknown]
  - Eyelid oedema [Not Recovered/Not Resolved]
  - Rash macular [Not Recovered/Not Resolved]
